FAERS Safety Report 5324774-0 (Version None)
Quarter: 2007Q2

REPORT INFORMATION
  Report Type: 
  Country: None (occurrence: None)
  Receive Date: 20070515
  Receipt Date: 20070508
  Transmission Date: 20071010
  Serious: Yes (Other)
  Sender: FDA-Public Use
  Company Number: PHEH2007US04045

PATIENT
  Sex: Female

DRUGS (14)
  1. ZELNORM [Suspect]
     Dosage: 10 MG, UNK
     Dates: start: 20060701
  2. ZELNORM [Suspect]
     Dosage: UNK
     Dates: start: 20040526, end: 20060701
  3. PREVACID [Concomitant]
  4. DOPAMINE HCL [Concomitant]
  5. XANAX [Concomitant]
  6. TESSALON [Concomitant]
     Indication: COUGH
     Dosage: 100 MG, UNK
  7. DALMANE [Concomitant]
     Dosage: 30 MG, UNK
  8. ZANAFLEX [Concomitant]
  9. PHENERGAN HCL [Concomitant]
  10. SYNTHROID [Concomitant]
     Indication: THYROID DISORDER
     Dosage: 125 MG, QD
  11. ZYRTEC [Concomitant]
     Indication: HYPERSENSITIVITY
     Dosage: 10 MG, QD
  12. REGLAN [Concomitant]
     Dosage: 10 MG, QD
  13. TRILEPTAL [Concomitant]
  14. MAXZIDE [Concomitant]
     Dosage: 75 MG, BID

REACTIONS (4)
  - CATHETERISATION CARDIAC [None]
  - CHEST PAIN [None]
  - CORONARY ARTERY DISEASE [None]
  - MITRAL VALVE INCOMPETENCE [None]
